FAERS Safety Report 8552508-5 (Version None)
Quarter: 2012Q3

REPORT INFORMATION
  Report Type: 
  Country: None (occurrence: None)
  Receive Date: 20120724
  Receipt Date: 20120724
  Transmission Date: 20120928
  Serious: Yes (Hospitalization, Other)
  Sender: FDA-Public Use
  Company Number: None

PATIENT
  Sex: Female

DRUGS (1)
  1. HUMIRA [Suspect]
     Indication: CROHN'S DISEASE
     Dosage: 40MG/0.8ML EVERY OTHER WEEK SQ
     Route: 058
     Dates: start: 20110912, end: 20120505

REACTIONS (2)
  - HEADACHE [None]
  - STAPHYLOCOCCAL INFECTION [None]
